FAERS Safety Report 7408519-6 (Version None)
Quarter: 2011Q2

REPORT INFORMATION
  Report Type: 
  Country: None (occurrence: None)
  Receive Date: 20110401
  Receipt Date: 20110316
  Transmission Date: 20111010
  Serious: Yes (Other)
  Sender: FDA-Public Use
  Company Number: 029426

PATIENT
  Sex: Female

DRUGS (9)
  1. VICODIN [Concomitant]
  2. CIMZIA [Suspect]
     Indication: RHEUMATOID ARTHRITIS
     Dosage: (SUBCUTANEOUS)
     Route: 058
     Dates: start: 20100401, end: 20100708
  3. AMLODIPINE [Concomitant]
  4. METHOTREXATE [Concomitant]
  5. ALENDRONATE SODIUM [Concomitant]
  6. ATENOLOL [Concomitant]
  7. FOLIC ACID [Concomitant]
  8. DETROL LA [Concomitant]
  9. PREDNIISONE [Concomitant]

REACTIONS (2)
  - STAPHYLOCOCCAL INFECTION [None]
  - ARTHRITIS INFECTIVE [None]
